FAERS Safety Report 9445460 (Version 1)
Quarter: 2013Q3

REPORT INFORMATION
  Report Type: Spontaneous
  Country: IT (occurrence: IT)
  Receive Date: 20130807
  Receipt Date: 20130807
  Transmission Date: 20140515
  Serious: Yes (Death, Hospitalization)
  Sender: FDA-Public Use
  Company Number: IT-BAYER-2013-092092

PATIENT
  Age: 80 Year
  Sex: Female

DRUGS (5)
  1. CIPROXIN 500 MG FILM-COATED TABLETS [Suspect]
     Indication: BACTERIAL INFECTION
     Dosage: DAILY DOSE 500 MG
     Route: 048
     Dates: start: 20130620, end: 20130629
  2. ZYLORIC [Suspect]
     Indication: GOUT
     Dosage: DAILY DOSE 300 MG
     Route: 048
     Dates: start: 20130501, end: 20130701
  3. COAPROVEL [Concomitant]
     Indication: HYPERTENSION
     Dosage: DAILY DOSE 1 DF
     Route: 048
     Dates: start: 20110701, end: 20130701
  4. LASIX [Concomitant]
     Dosage: DAILY DOSE 25 MG
     Route: 048
     Dates: start: 20110701, end: 20130701
  5. CARDIOASPIRIN [Concomitant]
     Indication: ISCHAEMIC STROKE
     Dosage: DAILY DOSE 100 MG
     Route: 048
     Dates: start: 20130625, end: 20130701

REACTIONS (4)
  - Multi-organ failure [Fatal]
  - Skin exfoliation [Fatal]
  - Epidermolysis bullosa [Fatal]
  - Toxic epidermal necrolysis [Fatal]
